FAERS Safety Report 6716606-0 (Version None)
Quarter: 2010Q2

REPORT INFORMATION
  Report Type: 
  Country: None (occurrence: None)
  Receive Date: 20100507
  Receipt Date: 20100429
  Transmission Date: 20101027
  Serious: Yes (Other)
  Sender: FDA-Public Use
  Company Number: US-MERCK-1004USA03044

PATIENT
  Sex: Male

DRUGS (13)
  1. PEPCID [Suspect]
     Route: 048
  2. ZESTRIL [Suspect]
     Route: 048
  3. METFORMIN HYDROCHLORIDE [Suspect]
     Route: 065
  4. FENOFIBRATE [Suspect]
     Route: 065
  5. PLAVIX [Suspect]
     Route: 065
  6. INSULIN [Suspect]
     Route: 065
  7. HYDRODIURIL [Suspect]
     Route: 048
  8. ASPIRIN [Suspect]
     Route: 065
  9. TOPAMAX [Suspect]
     Route: 048
  10. OMEPRAZOLE [Suspect]
     Route: 048
  11. GABAPENTIN [Suspect]
     Route: 065
  12. COLACE [Suspect]
     Route: 065
  13. CRESTOR [Suspect]
     Route: 048

REACTIONS (8)
  - CARDIAC DISORDER [None]
  - CARDIOVASCULAR DISORDER [None]
  - DIABETES MELLITUS [None]
  - DIABETIC NEUROPATHY [None]
  - HYPERTENSION [None]
  - NEPHROLITHIASIS [None]
  - OBESITY [None]
  - THYROID DISORDER [None]
